FAERS Safety Report 18060901 (Version 1)
Quarter: 2020Q3

REPORT INFORMATION
  Report Type: Spontaneous
  Country: SE (occurrence: SE)
  Receive Date: 20200723
  Receipt Date: 20200723
  Transmission Date: 20201103
  Serious: Yes (Other)
  Sender: FDA-Public Use
  Company Number: SE-NOVOPROD-741258

PATIENT
  Sex: Female

DRUGS (5)
  1. FIASP [Suspect]
     Active Substance: INSULIN ASPART
     Dosage: 90?170 UNITS QD (2ND VIAL)
     Route: 058
  2. FIASP [Suspect]
     Active Substance: INSULIN ASPART
     Dosage: 90?170 UNITS QD (2ND PRESCRIPTION 2ST VIAL)
     Route: 058
  3. FIASP [Suspect]
     Active Substance: INSULIN ASPART
     Indication: PRODUCT USED FOR UNKNOWN INDICATION
     Dosage: 90?170 UNITS QD (1ST VIAL)
     Route: 058
  4. FIASP [Suspect]
     Active Substance: INSULIN ASPART
     Dosage: 90?170 UNITS QD (2ND PRESCRIPTION 1ST VIAL)
     Route: 058
  5. FIASP [Suspect]
     Active Substance: INSULIN ASPART
     Dosage: 90?170 UNITS QD (3RD VIAL)
     Route: 058

REACTIONS (4)
  - Product quality issue [Unknown]
  - Diabetic ketoacidosis [Unknown]
  - Drug ineffective [Unknown]
  - Product physical consistency issue [Unknown]
